FAERS Safety Report 6430206-1 (Version None)
Quarter: 2009Q4

REPORT INFORMATION
  Report Type: 
  Country: None (occurrence: None)
  Receive Date: 20091106
  Receipt Date: 20091029
  Transmission Date: 20100525
  Serious: Yes (Hospitalization)
  Sender: FDA-Public Use
  Company Number: BR-ROCHE-661747

PATIENT
  Sex: Female
  Weight: 61 kg

DRUGS (4)
  1. BONIVA [Suspect]
     Indication: OSTEOPOROSIS
     Route: 048
     Dates: start: 20091001, end: 20091001
  2. SYNTHROID [Concomitant]
     Indication: HYPOTHYROIDISM
     Route: 048
     Dates: start: 20050101
  3. LIPLESS [Concomitant]
     Route: 048
     Dates: start: 20090801
  4. CALCIUM/VITAMIN D [Concomitant]
     Dosage: CALCIUM 600MG AND D VITAMIN 400IU.
     Route: 048
     Dates: start: 20091001, end: 20091001

REACTIONS (5)
  - ENTERITIS [None]
  - INFLUENZA LIKE ILLNESS [None]
  - INSOMNIA [None]
  - MYALGIA [None]
  - PERIPHERAL COLDNESS [None]
